FAERS Safety Report 4496283-2 (Version None)
Quarter: 2004Q3

REPORT INFORMATION
  Report Type: 
  Country: None (occurrence: None)
  Receive Date: 20040921
  Receipt Date: 20040224
  Transmission Date: 20050211
  Serious: Yes (Hospitalization)
  Sender: FDA-Public Use
  Company Number: 163-20785-04020701 (0)

PATIENT
  Age: 65 Year
  Sex: Female

DRUGS (13)
  1. THALOMID [Suspect]
     Indication: MULTIPLE MYELOMA
     Dosage: 100 MG, DAILY, ORAL
     Route: 048
     Dates: start: 20030815
  2. THALOMID [Suspect]
     Indication: MULTIPLE MYELOMA
     Dosage: 100 MG, DAILY, ORAL
     Route: 048
     Dates: start: 20030912
  3. THALOMID [Suspect]
     Indication: MULTIPLE MYELOMA
     Dosage: 100 MG, DAILY, ORAL
     Route: 048
     Dates: start: 20031010
  4. THALOMID [Suspect]
     Indication: MULTIPLE MYELOMA
     Dosage: 100 MG, DAILY, ORAL
     Route: 048
     Dates: start: 20031110
  5. THALOMID [Suspect]
     Dosage: UP TO 400MG, DAILY, PO
     Route: 048
     Dates: start: 20020101
  6. DEXAMETHASONE [Suspect]
     Indication: MULTIPLE MYELOMA
     Dosage: 40 MG, DAILY, ORAL
     Route: 048
     Dates: start: 20031010, end: 20031013
  7. DEXAMETHASONE [Suspect]
     Indication: MULTIPLE MYELOMA
     Dosage: 40 MG, DAILY, ORAL
     Route: 048
     Dates: start: 20030815
  8. DEXAMETHASONE [Suspect]
     Indication: MULTIPLE MYELOMA
     Dosage: 40 MG, DAILY, ORAL
     Route: 048
     Dates: start: 20030912
  9. DEXAMETHASONE [Suspect]
     Dosage: 40 MG, QD X4DAYS, PO
     Route: 048
     Dates: start: 20031101, end: 20040201
  10. INTERFERON (INTERFERON) [Suspect]
     Indication: MULTIPLE MYELOMA
     Dosage: 3 MILLION UNITS, 3X/ WEEK, SUBCUTANEOUS
     Route: 058
     Dates: start: 20031110, end: 20031222
  11. INTERFERON (INTERFERON) [Suspect]
     Indication: MULTIPLE MYELOMA
     Dosage: 3 MILLION UNITS, 3X/ WEEK, SUBCUTANEOUS
     Route: 058
     Dates: start: 20040201
  12. AREDIA [Concomitant]
  13. FAMVIR [Concomitant]

REACTIONS (4)
  - HAEMORRHAGIC STROKE [None]
  - HEMIPLEGIA [None]
  - HERPES ZOSTER [None]
  - HYPERTENSION [None]
